FAERS Safety Report 4612131-1 (Version None)
Quarter: 2005Q2

REPORT INFORMATION
  Report Type: 
  Country: None (occurrence: None)
  Receive Date: 20050308
  Receipt Date: 20041129
  Transmission Date: 20051028
  Serious: Yes (Other)
  Sender: FDA-Public Use
  Company Number: 2004UW24340

PATIENT
  Age: 57 Year
  Sex: Male
  Weight: 74.842 kg

DRUGS (3)
  1. CRESTOR [Suspect]
     Indication: BLOOD CHOLESTEROL INCREASED
     Dosage: 10 MG PO
     Route: 048
  2. FLONASE [Concomitant]
  3. SINGULAIR [Concomitant]

REACTIONS (4)
  - MYALGIA [None]
  - PRURITUS [None]
  - RASH [None]
  - SKIN DISCOMFORT [None]
